FAERS Safety Report 20942604 (Version 1)
Quarter: 2022Q2

REPORT INFORMATION
  Report Type: Spontaneous
  Country: ES (occurrence: ES)
  Receive Date: 20220610
  Receipt Date: 20220610
  Transmission Date: 20220720
  Serious: Yes (Life-Threatening, Hospitalization)
  Sender: FDA-Public Use
  Company Number: None

PATIENT
  Age: 12 Year
  Sex: Male

DRUGS (3)
  1. DOXORUBICIN [Interacting]
     Active Substance: DOXORUBICIN
     Indication: Osteosarcoma
     Dosage: DOXORUBICINA (202A)
     Route: 042
     Dates: start: 20220310, end: 20220312
  2. CISPLATIN [Interacting]
     Active Substance: CISPLATIN
     Indication: Osteosarcoma
     Dosage: CISPLATINO (644A)
     Route: 042
     Dates: start: 20220310, end: 20220312
  3. METHOTREXATE [Interacting]
     Active Substance: METHOTREXATE
     Indication: Osteosarcoma
     Dosage: METOTREXATO (418A)
     Route: 042
     Dates: start: 20220303, end: 20220303

REACTIONS (3)
  - Agranulocytosis [Recovered/Resolved]
  - Pyrexia [Recovered/Resolved]
  - Drug interaction [Unknown]

NARRATIVE: CASE EVENT DATE: 20220323
